FAERS Safety Report 6427584-6 (Version None)
Quarter: 2009Q4

REPORT INFORMATION
  Report Type: 
  Country: None (occurrence: None)
  Receive Date: 20091104
  Receipt Date: 20091023
  Transmission Date: 20100525
  Serious: Yes (Hospitalization)
  Sender: FDA-Public Use
  Company Number: US-PFIZER INC-2009255343

PATIENT
  Sex: Male
  Weight: 124.72 kg

DRUGS (16)
  1. PREDNISONE [Suspect]
     Indication: PROSTATE CANCER
     Dosage: 5 MG, 2X/DAY
     Route: 048
     Dates: start: 20071101, end: 20090813
  2. BLINDED *NO SUBJECT DRUG [Suspect]
     Indication: PROSTATE CANCER
     Dosage: 37.5 MG, 1X/DAY
     Route: 048
     Dates: start: 20090730, end: 20090813
  3. BLINDED *PLACEBO [Suspect]
     Indication: PROSTATE CANCER
     Dosage: 37.5 MG, 1X/DAY
     Route: 048
     Dates: start: 20090730, end: 20090813
  4. BLINDED SUNITINIB MALATE [Suspect]
     Indication: PROSTATE CANCER
     Dosage: 37.5 MG, 1X/DAY
     Route: 048
     Dates: start: 20090730, end: 20090813
  5. OXYCODONE [Concomitant]
     Indication: PAIN
     Dosage: 10 MG, AS NEEDED
     Route: 048
     Dates: start: 20081101
  6. METFORMIN HYDROCHLORIDE [Concomitant]
     Indication: DIABETES MELLITUS
     Dosage: 1 G, 2X/DAY
     Route: 048
     Dates: start: 20050101
  7. HYZAAR [Concomitant]
     Indication: HYPERTENSION
     Dosage: 100/25 MG, 1X/DAY
     Route: 048
     Dates: start: 20050101
  8. LORAZEPAM [Concomitant]
     Indication: ANXIETY
     Dosage: 0.5 MG, EVERY 6 HOURS AS NEEDED
     Route: 048
     Dates: start: 20081101
  9. OXYCONTIN [Concomitant]
     Indication: PAIN
     Dosage: UNK
     Route: 048
     Dates: start: 20081101
  10. COMPAZINE [Concomitant]
     Indication: NAUSEA
     Dosage: UNK
     Route: 048
     Dates: start: 20081101
  11. ZOLPIDEM [Concomitant]
     Indication: INSOMNIA
     Dosage: UNK
     Route: 048
     Dates: start: 20080101
  12. HYDROCODONE/IBUPROFEN [Concomitant]
     Indication: PAIN
     Dosage: UNK
     Route: 048
     Dates: start: 20081101
  13. LOMOTIL [Concomitant]
     Indication: DIARRHOEA
     Dosage: 2.5, 0.25/5, AS NEEDED
     Route: 048
     Dates: start: 20080101
  14. CARISOPRODOL [Concomitant]
     Indication: PAIN
     Dosage: 350 MG, 4X/DAY
     Route: 048
     Dates: start: 20071101
  15. GRANISETRON [Concomitant]
     Indication: NAUSEA
     Dosage: UNK
     Route: 048
     Dates: start: 20090812
  16. OMEPRAZOLE [Concomitant]
     Indication: NAUSEA
     Dosage: 40 MG, AS NEEDED
     Route: 048
     Dates: start: 20090812

REACTIONS (2)
  - DECREASED APPETITE [None]
  - DEHYDRATION [None]
